FAERS Safety Report 15862990 (Version 1)
Quarter: 2019Q1

REPORT INFORMATION
  Report Type: Spontaneous
  Country: US (occurrence: US)
  Receive Date: 20190118
  Receipt Date: 20190118
  Transmission Date: 20190417
  Serious: No
  Sender: FDA-Public Use
  Company Number: None

PATIENT
  Age: 59 Year
  Sex: Female

DRUGS (1)
  1. MYCOPHENOLATE MOFETIL 500MG TABLET [Suspect]
     Active Substance: MYCOPHENOLATE MOFETIL
     Dates: start: 201812, end: 201901

REACTIONS (4)
  - Nausea [None]
  - Vomiting [None]
  - Abdominal pain upper [None]
  - Sleep disorder [None]

NARRATIVE: CASE EVENT DATE: 20181218
